FAERS Safety Report 9376793 (Version 2)
Quarter: 2013Q3

REPORT INFORMATION
  Report Type: Report from Study
  Country: DE (occurrence: DE)
  Receive Date: 20130701
  Receipt Date: 20130723
  Transmission Date: 20140515
  Serious: Yes (Hospitalization)
  Sender: FDA-Public Use
  Company Number: DE-BAYER-2013-038903

PATIENT
  Sex: Male
  Weight: 80 kg

DRUGS (1)
  1. REGORAFENIB [Suspect]
     Indication: RECTAL CANCER
     Dosage: 160 MG, QD
     Route: 048
     Dates: start: 20130311, end: 20130331

REACTIONS (3)
  - Bronchitis [Recovering/Resolving]
  - Bronchitis [Recovered/Resolved]
  - Diarrhoea [Not Recovered/Not Resolved]
